FAERS Safety Report 14370573 (Version 1)
Quarter: 2018Q1

REPORT INFORMATION
  Report Type: Spontaneous
  Country: US (occurrence: US)
  Receive Date: 20180110
  Receipt Date: 20180110
  Transmission Date: 20180509
  Serious: No
  Sender: FDA-Public Use
  Company Number: US-PFIZER INC-2018005565

PATIENT
  Sex: Female
  Weight: 55.34 kg

DRUGS (1)
  1. PROPANOLOL HCL [Suspect]
     Active Substance: PROPRANOLOL HYDROCHLORIDE
     Indication: BLOOD PRESSURE ABNORMAL
     Dosage: 20 MG, DAILY (40MG 0.5 TABLET DAILY BY MOUTH)
     Route: 048

REACTIONS (1)
  - Hypotension [Unknown]
